FAERS Safety Report 13653360 (Version 1)
Quarter: 2017Q2

REPORT INFORMATION
  Report Type: Spontaneous
  Country: US (occurrence: US)
  Receive Date: 20170614
  Receipt Date: 20170614
  Transmission Date: 20170830
  Serious: No
  Sender: FDA-Public Use
  Company Number: US-ROCHE-1229665

PATIENT
  Sex: Female

DRUGS (2)
  1. XELODA [Suspect]
     Active Substance: CAPECITABINE
     Indication: RECTAL CANCER
     Dosage: 14 DAYS ON AND 7 DAYS OFF
     Route: 048
     Dates: start: 20130422
  2. VITAMIN B6 [Concomitant]
     Active Substance: PYRIDOXINE HYDROCHLORIDE

REACTIONS (3)
  - Neuropathy peripheral [Not Recovered/Not Resolved]
  - Palmar-plantar erythrodysaesthesia syndrome [Unknown]
  - Parosmia [Unknown]
